FAERS Safety Report 9304474 (Version 3)
Quarter: 2014Q2

REPORT INFORMATION
  Report Type: Spontaneous
  Country: US (occurrence: US)
  Receive Date: 20130523
  Receipt Date: 20140513
  Transmission Date: 20141212
  Serious: No
  Sender: FDA-Public Use
  Company Number: US-009507513-1305USA011626

PATIENT
  Sex: Male
  Weight: 110.2 kg

DRUGS (3)
  1. PROPECIA [Suspect]
     Indication: ANDROGENETIC ALOPECIA
     Dosage: 1 MG, QD
     Route: 048
     Dates: start: 2008
  2. DIOVAN [Concomitant]
     Indication: HYPERTENSION
     Dosage: 160 MG, QD
     Route: 048
  3. ATIVAN [Concomitant]
     Indication: ANXIETY
     Dosage: 2 MG, HS
     Route: 048

REACTIONS (12)
  - Stress [Unknown]
  - Anxiety [Not Recovered/Not Resolved]
  - Nasal septal operation [Unknown]
  - Hypercholesterolaemia [Unknown]
  - Back injury [Unknown]
  - Hypogonadism [Unknown]
  - Libido decreased [Not Recovered/Not Resolved]
  - Erectile dysfunction [Not Recovered/Not Resolved]
  - Sexual dysfunction [Not Recovered/Not Resolved]
  - Depression [Not Recovered/Not Resolved]
  - Organic erectile dysfunction [Unknown]
  - Back injury [Unknown]
